FAERS Safety Report 8331232-8 (Version None)
Quarter: 2012Q2

REPORT INFORMATION
  Report Type: 
  Country: None (occurrence: None)
  Receive Date: 20120502
  Receipt Date: 20120413
  Transmission Date: 20120825
  Serious: Yes (Hospitalization)
  Sender: FDA-Public Use
  Company Number: US-AMGEN-USASP2011002925

PATIENT
  Age: 57 Year
  Sex: Male
  Weight: 176.87 kg

DRUGS (2)
  1. HUMIRA [Concomitant]
     Dosage: UNK
  2. ENBREL [Suspect]
     Indication: PSORIASIS
     Dosage: 50 MG, 2 TIMES/WK
     Dates: start: 20080101

REACTIONS (2)
  - THERAPEUTIC RESPONSE DECREASED [None]
  - CELLULITIS [None]
